FAERS Safety Report 25972834 (Version 1)
Quarter: 2025Q4

REPORT INFORMATION
  Report Type: Spontaneous
  Country: US (occurrence: US)
  Receive Date: 20251029
  Receipt Date: 20251029
  Transmission Date: 20260117
  Serious: No
  Sender: TEVA
  Company Number: US-TEVA-VS-3381229

PATIENT
  Age: 61 Year
  Sex: Male

DRUGS (1)
  1. CABERGOLINE [Suspect]
     Active Substance: CABERGOLINE
     Indication: Pituitary tumour
     Route: 048
     Dates: start: 2025, end: 20251002

REACTIONS (4)
  - Emotional distress [Recovered/Resolved]
  - Personality change [Recovered/Resolved]
  - Hypersexuality [Recovered/Resolved]
  - Gambling [Recovered/Resolved]

NARRATIVE: CASE EVENT DATE: 20250101
